FAERS Safety Report 15470508 (Version 3)
Quarter: 2018Q4

REPORT INFORMATION
  Report Type: Report from Study
  Country: US (occurrence: US)
  Receive Date: 20181005
  Receipt Date: 20181015
  Transmission Date: 20190205
  Serious: No
  Sender: FDA-Public Use
  Company Number: PHEH2018US041087

PATIENT
  Sex: Male

DRUGS (1)
  1. COSENTYX [Suspect]
     Active Substance: SECUKINUMAB
     Indication: PRODUCT USED FOR UNKNOWN INDICATION
     Route: 065

REACTIONS (9)
  - Mouth swelling [Unknown]
  - Eating disorder [Unknown]
  - Oral herpes [Unknown]
  - Tongue discolouration [Unknown]
  - Oral discomfort [Unknown]
  - Spinal deformity [Unknown]
  - Product storage error [Unknown]
  - Swollen tongue [Unknown]
  - Tongue blistering [Unknown]
